FAERS Safety Report 20784103 (Version 1)
Quarter: 2022Q2

REPORT INFORMATION
  Report Type: Spontaneous
  Country: DE (occurrence: DE)
  Receive Date: 20220504
  Receipt Date: 20220504
  Transmission Date: 20220721
  Serious: Yes (Hospitalization)
  Sender: FDA-Public Use
  Company Number: DE-DCGMA-21192834

PATIENT
  Age: 60 Year
  Sex: Female

DRUGS (8)
  1. PANTOPRAZOLE [Suspect]
     Active Substance: PANTOPRAZOLE
     Indication: Stent placement
     Dosage: 40 MILLIGRAM DAILY; DAILY DOSE: 40 MG MILLGRAM(S) EVERY DAYS
     Route: 048
  2. BISOPROLOL [Concomitant]
     Active Substance: BISOPROLOL
     Dosage: 5 MILLIGRAM DAILY; DAILY DOSE: 5 MG MILLGRAM(S) EVERY DAYS 2 SEPARATED DOSES
     Route: 048
  3. ASPIRIN [Concomitant]
     Active Substance: ASPIRIN
     Dosage: 100 MILLIGRAM DAILY; DAILY DOSE: 100 MG MILLGRAM(S) EVERY DAYS
     Route: 048
  4. ALLOPURINOL [Concomitant]
     Active Substance: ALLOPURINOL
     Dosage: 300 MILLIGRAM DAILY; DAILY DOSE: 300 MG MILLGRAM(S) EVERY DAYS
     Route: 048
  5. TORSEMIDE [Concomitant]
     Active Substance: TORSEMIDE
     Dosage: 10 MILLIGRAM DAILY; DAILY DOSE: 10 MG MILLGRAM(S) EVERY DAYS
     Route: 048
  6. ATORVASTATIN [Concomitant]
     Active Substance: ATORVASTATIN
     Dosage: 20 MILLIGRAM DAILY; DAILY DOSE: 20 MG MILLGRAM(S) EVERY DAYS
     Route: 048
  7. PRASUGREL [Concomitant]
     Active Substance: PRASUGREL
     Dosage: 10 MILLIGRAM DAILY; DAILY DOSE: 10 MG MILLGRAM(S) EVERY DAYS
     Route: 048
  8. AMLODIPINE [Concomitant]
     Active Substance: AMLODIPINE BESYLATE
     Dosage: 10 MILLIGRAM DAILY; DAILY DOSE: 10 MG MILLGRAM(S) EVERY DAYS
     Route: 048

REACTIONS (5)
  - Atrial flutter [Unknown]
  - Seizure [Unknown]
  - Hypomagnesaemia [Unknown]
  - Hypokalaemia [Unknown]
  - Hypocalcaemia [Unknown]

NARRATIVE: CASE EVENT DATE: 20210810
